FAERS Safety Report 17133105 (Version 2)
Quarter: 2019Q4

REPORT INFORMATION
  Report Type: Spontaneous
  Country: FR (occurrence: FR)
  Receive Date: 20191210
  Receipt Date: 20191219
  Transmission Date: 20200122
  Serious: Yes (Other)
  Sender: FDA-Public Use
  Company Number: FR-AUROBINDO-AUR-APL-2019-104005

PATIENT
  Age: 55 Year
  Sex: Female

DRUGS (2)
  1. LIDOCAINE SOLUTION FOR INJECTION [Suspect]
     Active Substance: LIDOCAINE
     Indication: ANAESTHESIA
     Dosage: 20 MILLIGRAM PER MILLILETER, SINGLE
     Route: 051
  2. ROPIVACAINE HYDROCHLORIDE. [Suspect]
     Active Substance: ROPIVACAINE HYDROCHLORIDE
     Indication: ANAESTHESIA
     Dosage: 5 MILLIGRAM/MILILITER
     Route: 051

REACTIONS (9)
  - Anxiety [Unknown]
  - Anaesthetic complication neurological [Not Recovered/Not Resolved]
  - Dysgeusia [Recovered/Resolved]
  - Insomnia [Unknown]
  - Dysphagia [Recovered/Resolved]
  - Wrong technique in product usage process [Unknown]
  - Dysphonia [Recovered/Resolved]
  - Dizziness [Recovered/Resolved]
  - Eyelid ptosis [Recovered/Resolved]
